FAERS Safety Report 12386354 (Version 1)
Quarter: 2016Q2

REPORT INFORMATION
  Report Type: Spontaneous
  Country: US (occurrence: US)
  Receive Date: 20160519
  Receipt Date: 20160519
  Transmission Date: 20160815
  Serious: Yes (Other)
  Sender: FDA-Public Use
  Company Number: US-MDT-ADR-2016-00213

PATIENT
  Age: 11 Year
  Sex: Male

DRUGS (1)
  1. BACLOFEN. [Suspect]
     Active Substance: BACLOFEN
     Route: 037

REACTIONS (4)
  - Shunt infection [Unknown]
  - Medical device site infection [Unknown]
  - Central nervous system infection [Unknown]
  - CSF test abnormal [Unknown]
